FAERS Safety Report 8890525 (Version 1)
Quarter: 2012Q4

REPORT INFORMATION
  Report Type: 
  Country: US (occurrence: US)
  Receive Date: 20121107
  Receipt Date: 20121107
  Transmission Date: 20130627
  Serious: No
  Sender: FDA-Public Use
  Company Number: US-PFIZER INC-2012270008

PATIENT

DRUGS (1)
  1. R-GENE [Suspect]
     Dosage: UNK

REACTIONS (2)
  - Off label use [Unknown]
  - Hypotension [Unknown]
